FAERS Safety Report 5211560-5 (Version None)
Quarter: 2007Q1

REPORT INFORMATION
  Report Type: 
  Country: None (occurrence: None)
  Receive Date: 20070116
  Receipt Date: 20070116
  Transmission Date: 20070707
  Serious: No
  Sender: FDA-Public Use
  Company Number: None

PATIENT
  Age: 21 Year
  Sex: Male

DRUGS (2)
  1. PROPOFOL [Suspect]
     Dates: start: 20061029, end: 20061031
  2. AZITHROMYCIN [Suspect]

REACTIONS (1)
  - PANCREATITIS [None]
